FAERS Safety Report 4955600-7 (Version None)
Quarter: 2006Q1

REPORT INFORMATION
  Report Type: 
  Country: None (occurrence: None)
  Receive Date: 20060328
  Receipt Date: 20060323
  Transmission Date: 20060701
  Serious: Yes (Hospitalization)
  Sender: FDA-Public Use
  Company Number: US-MERCK-0603USA03703

PATIENT
  Sex: Female

DRUGS (2)
  1. FOSAMAX [Suspect]
     Route: 048
     Dates: start: 19950101
  2. FOSAMAX [Suspect]
     Route: 048

REACTIONS (3)
  - BONE DISORDER [None]
  - INFECTION [None]
  - SPINAL COMPRESSION FRACTURE [None]
